FAERS Safety Report 5517371-5 (Version None)
Quarter: 2007Q4

REPORT INFORMATION
  Report Type: 
  Country: None (occurrence: None)
  Receive Date: 20071114
  Receipt Date: 20071101
  Transmission Date: 20080405
  Serious: Yes (Other)
  Sender: FDA-Public Use
  Company Number: GR-AMGEN-UK251279

PATIENT
  Sex: Male
  Weight: 80 kg

DRUGS (2)
  1. KEPIVANCE [Suspect]
     Indication: PERIPHERAL BLOOD STEM CELL APHERESIS
     Route: 042
     Dates: start: 20070118, end: 20070131
  2. ANTIBIOTICS [Concomitant]
     Route: 065

REACTIONS (3)
  - DYSGEUSIA [None]
  - RASH [None]
  - TONGUE DISORDER [None]
